FAERS Safety Report 7609307-8 (Version None)
Quarter: 2011Q3

REPORT INFORMATION
  Report Type: 
  Country: None (occurrence: None)
  Receive Date: 20110714
  Receipt Date: 20110705
  Transmission Date: 20111222
  Serious: Yes (Life-Threatening, Other)
  Sender: FDA-Public Use
  Company Number: PHHY2011JP08809

PATIENT
  Sex: Female

DRUGS (54)
  1. AKINETON [Concomitant]
     Dosage: 6 MG, UNK
     Route: 048
     Dates: start: 20101201
  2. CEFTRIAXONE SODIUM [Concomitant]
     Dosage: 2000 MG, UNK
     Dates: start: 20110609, end: 20110609
  3. CLOZAPINE [Suspect]
     Dosage: 250 MG, UNK
     Route: 048
     Dates: start: 20101224, end: 20101225
  4. CLOZAPINE [Suspect]
     Dosage: 400 MG, UNK
     Route: 048
     Dates: start: 20110105, end: 20110106
  5. CLOZAPINE [Suspect]
     Dosage: 475 MG, UNK
     Route: 048
     Dates: start: 20110112, end: 20110114
  6. CLOZAPINE [Suspect]
     Dosage: 475 MG, UNK
     Route: 048
     Dates: start: 20110511, end: 20110513
  7. CLOZAPINE [Suspect]
     Dosage: 500 MG, UNK
     Route: 048
     Dates: start: 20110608, end: 20110609
  8. RISPERDAL [Concomitant]
     Dosage: 10 MG, UNK
     Route: 048
  9. LORAZEPAM [Concomitant]
     Indication: SCHIZOPHRENIA
     Dosage: UNK
     Route: 048
     Dates: start: 20101229, end: 20110301
  10. MAGMITT KENEI [Concomitant]
     Dosage: 3000 MG, UNK
     Route: 048
  11. TASMOLIN [Concomitant]
     Dosage: 2 MG, UNK
     Route: 048
     Dates: end: 20110601
  12. CLOZAPINE [Suspect]
     Dosage: 175 MG, UNK
     Route: 048
     Dates: start: 20101218, end: 20101220
  13. CLOZAPINE [Suspect]
     Dosage: 200 MG, UNK
     Route: 048
     Dates: start: 20101221, end: 20101221
  14. CLOZAPINE [Suspect]
     Dosage: 225 MG, UNK
     Route: 048
     Dates: start: 20101222, end: 20101223
  15. CLOZAPINE [Suspect]
     Dosage: 300 MG, UNK
     Route: 048
     Dates: start: 20101226, end: 20101228
  16. RISPERDAL [Concomitant]
     Dosage: 12 MG, UNK
     Route: 048
     Dates: start: 20101201
  17. AKINETON [Concomitant]
     Dosage: 4 MG, UNK
     Route: 048
  18. SLOWHEIM [Concomitant]
     Dosage: 7.5 MG, UNK
     Route: 048
     Dates: end: 20110609
  19. CLOZAPINE [Suspect]
     Indication: SCHIZOPHRENIA
     Dosage: 12.5 MG, UNK
     Route: 048
     Dates: start: 20101201, end: 20101201
  20. CLOZAPINE [Suspect]
     Dosage: 100 MG, UNK
     Route: 048
     Dates: start: 20101210, end: 20101211
  21. CLOZAPINE [Suspect]
     Dosage: 150 MG, UNK
     Route: 048
     Dates: start: 20101215, end: 20101217
  22. CLOZAPINE [Suspect]
     Dosage: 500 MG, UNK
     Route: 048
     Dates: start: 20110115, end: 20110118
  23. AKINETON [Concomitant]
     Dosage: 2 MG, UNK
     Route: 048
     Dates: end: 20110609
  24. SLOWHEIM [Concomitant]
     Indication: SCHIZOPHRENIA
     Dosage: 7.5 MG, UNK
     Dates: start: 20110302
  25. CLOZAPINE [Suspect]
     Dosage: 375 MG, UNK
     Route: 048
     Dates: start: 20110101, end: 20110104
  26. HIRNAMIN [Concomitant]
     Dosage: 150 MG, UNK
     Route: 048
     Dates: start: 20101201
  27. RISPERDAL [Concomitant]
     Dosage: 3 MG, UNK
     Route: 048
  28. MAGMITT KENEI [Concomitant]
     Dosage: 3000 MG, UNK
     Route: 048
  29. CLOZAPINE [Suspect]
     Dosage: 50 MG, UNK
     Route: 048
     Dates: start: 20101205, end: 20101207
  30. CLOZAPINE [Suspect]
     Dosage: 75 MG, UNK
     Route: 048
     Dates: start: 20101208, end: 20101209
  31. CLOZAPINE [Suspect]
     Dosage: 125 MG, UNK
     Route: 048
     Dates: start: 20101212, end: 20101214
  32. CLOZAPINE [Suspect]
     Dosage: 425 MG, UNK
     Route: 048
     Dates: start: 20110107, end: 20110108
  33. CLOZAPINE [Suspect]
     Dosage: 450 MG, UNK
     Route: 048
     Dates: start: 20110109, end: 20110111
  34. VALPROATE SODIUM [Concomitant]
     Dosage: 400 MG, DAILY
  35. HIRNAMIN [Concomitant]
     Dosage: 125 MG, UNK
     Route: 048
  36. HIRNAMIN [Concomitant]
     Dosage: 100 MG, UNK
     Route: 048
  37. HIRNAMIN [Concomitant]
     Dosage: 50 MG, UNK
     Route: 048
  38. LAXOBERON [Concomitant]
     Dosage: UNK
     Route: 048
     Dates: start: 20101201, end: 20110301
  39. CLOZAPINE [Suspect]
     Dosage: 350 MG, UNK
     Route: 048
     Dates: start: 20101229, end: 20101231
  40. CLOZAPINE [Suspect]
     Dosage: 550 MG, UNK
     Route: 048
     Dates: start: 20110119, end: 20110125
  41. CLOZAPINE [Suspect]
     Dosage: 500 MG, UNK
     Route: 048
     Dates: start: 20110203, end: 20110510
  42. CLOZAPINE [Suspect]
     Dosage: 450 MG, UNK
     Route: 048
     Dates: start: 20110514, end: 20110607
  43. RISPERDAL [Concomitant]
     Dosage: 6 MG, UNK
  44. RISPERDAL [Concomitant]
     Dosage: 2 MG, UNK
     Route: 048
     Dates: end: 20101228
  45. MAGMITT KENEI [Concomitant]
     Dosage: 3000 MG, UNK
     Route: 048
     Dates: end: 20110602
  46. TASMOLIN [Concomitant]
     Dosage: 2.5 MG, UNK
     Route: 048
  47. CLOZAPINE [Suspect]
     Dosage: 25 MG, UNK
     Route: 048
     Dates: start: 20101202, end: 20101204
  48. CLOZAPINE [Suspect]
     Dosage: 600 MG, UNK
     Route: 048
     Dates: start: 20110126, end: 20110202
  49. HIRNAMIN [Concomitant]
     Dosage: 25 MG, UNK
     Route: 048
     Dates: end: 20101228
  50. RISPERDAL [Concomitant]
     Dosage: 4 MG, UNK
     Route: 048
  51. AKINETON [Concomitant]
     Dosage: 5 MG, UNK
     Route: 048
  52. AMOBAN [Concomitant]
     Indication: SCHIZOPHRENIA
     Dosage: 7.5 MG, UNK
     Route: 048
     Dates: start: 20101201
  53. TASMOLIN [Concomitant]
     Dosage: 3 MG, UNK
     Dates: start: 20110302, end: 20110601
  54. PANTOL [Concomitant]
     Dosage: 100 MG, UNK
     Dates: start: 20110609, end: 20110609

REACTIONS (10)
  - NEUTROPENIA [None]
  - LEUKOPENIA [None]
  - GASTROINTESTINAL PERFORATION [None]
  - DIZZINESS [None]
  - WHITE BLOOD CELL COUNT DECREASED [None]
  - GRAND MAL CONVULSION [None]
  - INFECTIOUS PERITONITIS [None]
  - APPENDICITIS [None]
  - ORTHOSTATIC HYPERTENSION [None]
  - FALL [None]
